FAERS Safety Report 7127833-5 (Version None)
Quarter: 2010Q4

REPORT INFORMATION
  Report Type: 
  Country: None (occurrence: None)
  Receive Date: 20101029
  Receipt Date: 20100719
  Transmission Date: 20110411
  Serious: Yes (Hospitalization)
  Sender: FDA-Public Use
  Company Number: HU-003228

PATIENT
  Sex: Male
  Weight: 75 kg

DRUGS (9)
  1. DEGARELIX (DEGARELIX) (240 MG, 480 MG) [Suspect]
     Indication: PROSTATE CANCER
     Dosage: (240 MG 1X SUBCUTANEOUS), (480 MG MG 1X/3 MONTHS SUBCUTANEOUS)
     Route: 058
     Dates: start: 20100224, end: 20100224
  2. DEGARELIX (DEGARELIX) (240 MG, 480 MG) [Suspect]
     Indication: PROSTATE CANCER
     Dosage: (240 MG 1X SUBCUTANEOUS), (480 MG MG 1X/3 MONTHS SUBCUTANEOUS)
     Route: 058
     Dates: start: 20100324
  3. IRON [Concomitant]
  4. METFORMIN [Concomitant]
  5. ANTIHYPERTENSIVES AND DIURETICS IN COMBINATIO [Concomitant]
  6. ELECTROLYTE /00909901/ [Concomitant]
  7. GLIMEPIRIDE [Concomitant]
  8. VINPOCETINE [Concomitant]
  9. PIRACETAM [Concomitant]

REACTIONS (3)
  - CATARACT [None]
  - CONDITION AGGRAVATED [None]
  - GLAUCOMA [None]
